FAERS Safety Report 11487161 (Version 1)
Quarter: 2015Q3

REPORT INFORMATION
  Report Type: Spontaneous
  Country: US (occurrence: US)
  Receive Date: 20150909
  Receipt Date: 20150909
  Transmission Date: 20151125
  Serious: No
  Sender: FDA-Public Use
  Company Number: US-JAZZ-2015-US-000442

PATIENT
  Age: 52 Year
  Sex: Male

DRUGS (2)
  1. XYREM [Suspect]
     Active Substance: SODIUM OXYBATE
     Indication: CATAPLEXY
     Dosage: 3 G, BID
     Route: 048
     Dates: start: 201412
  2. XYREM [Suspect]
     Active Substance: SODIUM OXYBATE
     Indication: NARCOLEPSY
     Dosage: 2.25 G, BID
     Route: 048
     Dates: start: 201412, end: 201412

REACTIONS (10)
  - Asthenia [Not Recovered/Not Resolved]
  - Parasomnia [Recovered/Resolved]
  - Stress [Not Recovered/Not Resolved]
  - Pain [Unknown]
  - Ligament sprain [Unknown]
  - Fall [Recovered/Resolved]
  - Gait disturbance [Unknown]
  - Crying [Recovered/Resolved]
  - Depressed mood [Unknown]
  - Wrong technique in product usage process [Unknown]

NARRATIVE: CASE EVENT DATE: 20150109
